FAERS Safety Report 6094575-7 (Version None)
Quarter: 2009Q1

REPORT INFORMATION
  Report Type: 
  Country: None (occurrence: None)
  Receive Date: 20090226
  Receipt Date: 20090224
  Transmission Date: 20090719
  Serious: No
  Sender: FDA-Public Use
  Company Number: US-B.I. PHARMACEUTICALS,INC./RIDGEFIELD-2008-BP-17275BP

PATIENT
  Sex: Male

DRUGS (6)
  1. SPIRIVA [Suspect]
     Indication: CHRONIC OBSTRUCTIVE PULMONARY DISEASE
     Route: 055
  2. ADVAIR HFA [Suspect]
  3. MUCINEX [Concomitant]
     Indication: RHINORRHOEA
  4. VITAMIN [Concomitant]
  5. PAXIL [Concomitant]
     Indication: ANXIETY
  6. PREDNISONE [Concomitant]
     Indication: PNEUMONIA

REACTIONS (2)
  - APHONIA [None]
  - PNEUMONIA [None]
